FAERS Safety Report 6793162-2 (Version None)
Quarter: 2010Q2

REPORT INFORMATION
  Report Type: 
  Country: None (occurrence: None)
  Receive Date: 20100624
  Receipt Date: 20090720
  Transmission Date: 20101027
  Serious: Yes (Death, Other)
  Sender: FDA-Public Use
  Company Number: US-MYLANLABS-2009S1010852

PATIENT
  Age: 49 Year
  Sex: Male
  Weight: 70.76 kg

DRUGS (2)
  1. CLOZAPINE [Suspect]
     Indication: SCHIZOPHRENIA
     Route: 048
  2. CLOZAPINE [Suspect]
     Route: 048

REACTIONS (2)
  - EPIGLOTTIC MASS [None]
  - THROAT CANCER [None]
